FAERS Safety Report 9685437 (Version 1)
Quarter: 2013Q4

REPORT INFORMATION
  Report Type: Spontaneous
  Country: US (occurrence: None)
  Receive Date: 20131112
  Receipt Date: 20131112
  Transmission Date: 20140711
  Serious: No
  Sender: FDA-Public Use
  Company Number: None

PATIENT
  Age: 74 Year
  Sex: Male
  Weight: 74.4 kg

DRUGS (2)
  1. 5-FLUOROURACIL (5-FU) [Suspect]
  2. OXALIPLATIN (ELOXATIN) [Suspect]

REACTIONS (1)
  - Lymphocyte count decreased [None]
